FAERS Safety Report 8459687-9 (Version None)
Quarter: 2012Q2

REPORT INFORMATION
  Report Type: 
  Country: None (occurrence: None)
  Receive Date: 20120622
  Receipt Date: 20120613
  Transmission Date: 20120825
  Serious: Yes (Hospitalization)
  Sender: FDA-Public Use
  Company Number: FR-ABBOTT-12P-056-0939427-01

PATIENT
  Sex: Female
  Weight: 54 kg

DRUGS (4)
  1. HUMIRA [Suspect]
     Dosage: INDUCTION:  WEEK 2
     Route: 058
     Dates: start: 20080701, end: 20080701
  2. HUMIRA [Suspect]
     Indication: CROHN'S DISEASE
     Dosage: BASELINE:  INDUCTION
     Route: 058
     Dates: start: 20080708, end: 20080708
  3. HUMIRA [Suspect]
     Route: 058
     Dates: end: 20080808
  4. HUMIRA [Suspect]
     Route: 058
     Dates: start: 20081001, end: 20120102

REACTIONS (1)
  - BEHCET'S SYNDROME [None]
